FAERS Safety Report 18175025 (Version 1)
Quarter: 2020Q3

REPORT INFORMATION
  Report Type: Spontaneous
  Country: GB (occurrence: GB)
  Receive Date: 20200820
  Receipt Date: 20200820
  Transmission Date: 20201103
  Serious: Yes (Other)
  Sender: FDA-Public Use
  Company Number: GB-TEVA-2020-GB-1816159

PATIENT
  Age: 41 Year
  Sex: Female
  Weight: 95 kg

DRUGS (2)
  1. LAMOTRIGINE. [Suspect]
     Active Substance: LAMOTRIGINE
     Dosage: 100 MG
     Dates: start: 20200721
  2. AMITRIPTYLINE HYDROCHLORIDE. [Concomitant]
     Active Substance: AMITRIPTYLINE HYDROCHLORIDE
     Dosage: 1 DOSAGE FORMS DAILY; AT NIGHT
     Dates: start: 20200710

REACTIONS (1)
  - Anaphylactic reaction [Recovered/Resolved]

NARRATIVE: CASE EVENT DATE: 20200722
